FAERS Safety Report 13773009 (Version 2)
Quarter: 2017Q3

REPORT INFORMATION
  Report Type: Spontaneous
  Country: US (occurrence: US)
  Receive Date: 20170720
  Receipt Date: 20170830
  Transmission Date: 20171127
  Serious: Yes (Hospitalization, Other)
  Sender: FDA-Public Use
  Company Number: US-SAOL THERAPEUTICS-2017SAO01210

PATIENT
  Sex: Male
  Weight: 83.9 kg

DRUGS (4)
  1. COMPOUNDED CLONIDINE [Suspect]
     Active Substance: CLONIDINE
     Dosage: UNK UNK, \DAY
  2. COMPOUNDED BACLOFEN [Suspect]
     Active Substance: BACLOFEN
     Dosage: 300 ?G, \DAY
     Route: 037
     Dates: start: 200504
  3. UNSPECIFIED ANTIBIOTICS [Concomitant]
     Active Substance: UNSPECIFIED INGREDIENT
  4. COMPOUNDED MS04 [Suspect]
     Active Substance: MORPHINE SULFATE
     Route: 037

REACTIONS (3)
  - Urinary tract infection [Unknown]
  - Abscess [Recovered/Resolved]
  - Wound infection staphylococcal [Recovered/Resolved]

NARRATIVE: CASE EVENT DATE: 2017
